FAERS Safety Report 5222580-9 (Version None)
Quarter: 2007Q1

REPORT INFORMATION
  Report Type: 
  Country: None (occurrence: None)
  Receive Date: 20061201
  Receipt Date: 20060715
  Transmission Date: 20070707
  Serious: No
  Sender: FDA-Public Use
  Company Number: 2006PV017579

PATIENT
  Age: 75 Year
  Sex: Male
  Weight: 95.2554 kg

DRUGS (8)
  1. BYETTA [Suspect]
     Indication: DIABETES MELLITUS NON-INSULIN-DEPENDENT
     Dosage: SEE IMAGE
     Route: 058
     Dates: start: 20060711, end: 20060715
  2. BYETTA [Suspect]
     Indication: DIABETES MELLITUS NON-INSULIN-DEPENDENT
     Dosage: SEE IMAGE
     Route: 058
     Dates: start: 20060716, end: 20060716
  3. GLYBURIDE [Concomitant]
  4. METFORMIN HCL [Concomitant]
  5. GLYBURIDE AND METFORMIN HCL [Concomitant]
  6. FLOMAX [Concomitant]
  7. DOXAZOSIN MESYLATE [Concomitant]
  8. ACIPHEX [Concomitant]

REACTIONS (6)
  - ASTHENIA [None]
  - BLOOD GLUCOSE DECREASED [None]
  - BLOOD GLUCOSE FLUCTUATION [None]
  - DYSPEPSIA [None]
  - FEELING JITTERY [None]
  - IRRITABILITY [None]
